FAERS Safety Report 10542426 (Version 1)
Quarter: 2014Q4

REPORT INFORMATION
  Report Type: Spontaneous
  Country: US (occurrence: US)
  Receive Date: 20141026
  Receipt Date: 20141026
  Transmission Date: 20150529
  Serious: No
  Sender: FDA-Public Use
  Company Number: US-009507513-1410USA010777

PATIENT
  Sex: Male

DRUGS (7)
  1. HEXADROL [Suspect]
     Active Substance: DEXAMETHASONE
     Dosage: REPORTED AS ^6 DEXAMETHASONE^
     Route: 048
  2. TEMODAR [Suspect]
     Active Substance: TEMOZOLOMIDE
     Dosage: 400 MG, QD
     Route: 048
  3. HEXADROL [Suspect]
     Active Substance: DEXAMETHASONE
     Dosage: HIGH DOSES OF
     Route: 048
  4. CLARITIN [Concomitant]
     Active Substance: LORATADINE
     Dosage: 10MG
     Route: 048
  5. ZOFRAN [Concomitant]
     Active Substance: ONDANSETRON HYDROCHLORIDE
     Dosage: AN HOUR BEFORE TEMODAR
  6. COMPAZINE [Concomitant]
     Active Substance: PROCHLORPERAZINE MALEATE
     Dosage: AN HOUR AFTER TEMODAR
  7. KEPPRA [Concomitant]
     Active Substance: LEVETIRACETAM
     Indication: SEIZURE
     Dosage: 4000MG

REACTIONS (3)
  - Eating disorder [Unknown]
  - Adverse event [Unknown]
  - Apathy [Unknown]
